FAERS Safety Report 8677561 (Version 11)
Quarter: 2014Q3

REPORT INFORMATION
  Report Type: Spontaneous
  Country: US (occurrence: US)
  Receive Date: 20120723
  Receipt Date: 20140915
  Transmission Date: 20150326
  Serious: Yes (Life-Threatening, Hospitalization, Congenital Anomaly, Other)
  Sender: FDA-Public Use
  Company Number: US-PFIZER INC-2012173664

PATIENT
  Sex: Male
  Weight: 3.49 kg

DRUGS (22)
  1. BABY ASA [Concomitant]
     Active Substance: ASPIRIN
     Dosage: UNK
     Route: 064
     Dates: start: 20030903
  2. ZOLOFT [Suspect]
     Active Substance: SERTRALINE HYDROCHLORIDE
     Dosage: UNK
     Route: 064
     Dates: start: 20020411
  3. OVCON-35 [Concomitant]
     Dosage: UNK
     Route: 064
     Dates: start: 20020723
  4. SYNTHROID [Concomitant]
     Active Substance: LEVOTHYROXINE SODIUM
     Indication: HYPOTHYROIDISM
     Dosage: 100 UG, 1X/DAY
     Route: 064
     Dates: start: 20020621
  5. MYTUSSIN DAC [Concomitant]
     Dosage: UNK
     Route: 064
     Dates: start: 20031006
  6. MYTUSSIN AC [Concomitant]
     Dosage: UNK
     Route: 064
     Dates: start: 20031202
  7. HEMORRHOIDAL HC [Concomitant]
     Dosage: 25 MG, UNK
     Route: 064
     Dates: start: 20031015
  8. ZOLOFT [Suspect]
     Active Substance: SERTRALINE HYDROCHLORIDE
     Dosage: 100 MG, 1X/DAY
     Route: 064
     Dates: start: 20020520
  9. ZITHROMAX [Concomitant]
     Active Substance: AZITHROMYCIN DIHYDRATE
     Dosage: 250 MG, (Z-PAK)
     Route: 064
     Dates: start: 20031006
  10. TERBUTALINE [Concomitant]
     Active Substance: TERBUTALINE
     Dosage: 5 MG, EVERY 4 HRS
     Route: 064
     Dates: start: 20040115
  11. TYLENOL [Concomitant]
     Active Substance: ACETAMINOPHEN
     Indication: PAIN
     Dosage: 325 MG, UNK
     Route: 064
     Dates: start: 20030903
  12. ZOLOFT [Suspect]
     Active Substance: SERTRALINE HYDROCHLORIDE
     Dosage: 50 MG, 1X/DAY
     Route: 064
     Dates: start: 20030903
  13. PROMETHEGAN [Concomitant]
     Active Substance: PROMETHAZINE HYDROCHLORIDE
     Dosage: 25 MG, UNK
     Route: 064
     Dates: start: 20030902
  14. AMPICILLIN [Concomitant]
     Active Substance: AMPICILLIN
     Dosage: 500 MG, 1X/DAY
     Route: 064
     Dates: start: 20030903
  15. FE-TINIC [Concomitant]
     Active Substance: VITAMINS
     Dosage: 150 MG, UNK
     Route: 064
     Dates: start: 20040113
  16. BRETHINE [Concomitant]
     Active Substance: TERBUTALINE SULFATE
     Indication: UTERINE CONTRACTIONS DURING PREGNANCY
     Dosage: 5 MG, SINGLE
     Route: 064
     Dates: start: 20040114, end: 20040114
  17. PERCOCET [Concomitant]
     Active Substance: ACETAMINOPHEN\OXYCODONE HYDROCHLORIDE
     Dosage: 5/325 MG, ONE OR TWO EVERY 4 HRS IF NEEDED
     Route: 064
     Dates: start: 20030903
  18. BRETHINE [Concomitant]
     Active Substance: TERBUTALINE SULFATE
     Indication: UTERINE CONTRACTIONS DURING PREGNANCY
     Dosage: 0.25 MG, SINGLE
     Route: 064
     Dates: start: 20040114, end: 20040114
  19. MULTIVITAMINS [Concomitant]
     Active Substance: VITAMINS
     Dosage: UNK
     Route: 064
     Dates: start: 20030903
  20. OXYCODONE [Concomitant]
     Active Substance: OXYCODONE
     Indication: PAIN
     Dosage: 5 MG, UNK
     Route: 064
     Dates: start: 20030903
  21. TERBUTALINE [Concomitant]
     Active Substance: TERBUTALINE
     Dosage: 0.25 MG, UNK
     Route: 064
  22. PHENERGAN [Concomitant]
     Active Substance: PROMETHAZINE HYDROCHLORIDE
     Dosage: 25 MG, UNK
     Route: 064
     Dates: start: 20030903

REACTIONS (3)
  - Maternal exposure timing unspecified [Not Recovered/Not Resolved]
  - Premature baby [Unknown]
  - Craniosynostosis [Not Recovered/Not Resolved]

NARRATIVE: CASE EVENT DATE: 20040124
